FAERS Safety Report 13973347 (Version 1)
Quarter: 2017Q3

REPORT INFORMATION
  Report Type: Spontaneous
  Country: BR (occurrence: BR)
  Receive Date: 20170915
  Receipt Date: 20170915
  Transmission Date: 20171128
  Serious: Yes (Other)
  Sender: FDA-Public Use
  Company Number: BR-ROCHE-1988451

PATIENT
  Sex: Female

DRUGS (1)
  1. RIVOTRIL [Suspect]
     Active Substance: CLONAZEPAM
     Indication: HYPOTENSION
     Dosage: 2.5 MG/ML - 20 ML
     Route: 065

REACTIONS (9)
  - Nodule [Unknown]
  - Blister [Unknown]
  - Muscular weakness [Unknown]
  - Product dropper issue [Unknown]
  - Back disorder [Unknown]
  - Musculoskeletal stiffness [Unknown]
  - Nervous system disorder [Unknown]
  - Hepatic neoplasm [Unknown]
  - Off label use [Unknown]
